FAERS Safety Report 12178078 (Version 1)
Quarter: 2016Q1

REPORT INFORMATION
  Report Type: Spontaneous
  Country: US (occurrence: None)
  Receive Date: 20160314
  Receipt Date: 20160314
  Transmission Date: 20160526
  Serious: Yes (Hospitalization)
  Sender: FDA-Public Use
  Company Number: None

PATIENT
  Age: 61 Year
  Sex: Male
  Weight: 116.8 kg

DRUGS (1)
  1. 5-FLUOROURACIL (5-FU) [Suspect]
     Active Substance: FLUOROURACIL
     Dates: end: 20160228

REACTIONS (6)
  - Nausea [None]
  - Intestinal obstruction [None]
  - Adhesion [None]
  - Vomiting [None]
  - Small intestinal obstruction [None]
  - Abdominal pain [None]

NARRATIVE: CASE EVENT DATE: 20160301
